FAERS Safety Report 6634176-2 (Version None)
Quarter: 2010Q1

REPORT INFORMATION
  Report Type: 
  Country: None (occurrence: None)
  Receive Date: 20100315
  Receipt Date: 20100304
  Transmission Date: 20100710
  Serious: Yes (Disabling)
  Sender: FDA-Public Use
  Company Number: BR-ASTRAZENECA-2010SE10066

PATIENT
  Age: 49 Year
  Sex: Female
  Weight: 89 kg

DRUGS (3)
  1. ATACAND [Suspect]
     Indication: HYPERTENSION
     Route: 048
     Dates: start: 20090701, end: 20091101
  2. ATACAND [Suspect]
     Route: 048
     Dates: start: 20091101
  3. ATENOLOL [Suspect]
     Indication: HYPERTENSION
     Route: 048
     Dates: start: 20090501, end: 20090701

REACTIONS (6)
  - BLOOD PRESSURE INADEQUATELY CONTROLLED [None]
  - DIABETES MELLITUS [None]
  - DRUG INEFFECTIVE [None]
  - FALL [None]
  - HYPERCHOLESTEROLAEMIA [None]
  - TENDON INJURY [None]
